FAERS Safety Report 15905894 (Version 1)
Quarter: 2019Q1

REPORT INFORMATION
  Report Type: Spontaneous
  Country: US (occurrence: US)
  Receive Date: 20190202
  Receipt Date: 20190202
  Transmission Date: 20190417
  Serious: Yes (Disabling, Other)
  Sender: FDA-Public Use
  Company Number: None

PATIENT
  Age: 44 Year
  Sex: Male
  Weight: 103.5 kg

DRUGS (4)
  1. OXYCODONE/ACETAMINOPHEN 10/325MG TB [Suspect]
     Active Substance: ACETAMINOPHEN\OXYCODONE HYDROCHLORIDE
     Indication: NECK PAIN
     Dosage: ?          QUANTITY:120 TABLET(S);?
     Route: 048
     Dates: start: 20190131
  2. OXYCONTIN 10MG [Concomitant]
  3. OXYCODONE/APAP 10/325 [Concomitant]
  4. OXYCODONE/ACETAMINOPHEN 10/325MG TB [Suspect]
     Active Substance: ACETAMINOPHEN\OXYCODONE HYDROCHLORIDE
     Indication: SPINAL PAIN
     Dosage: ?          QUANTITY:120 TABLET(S);?
     Route: 048
     Dates: start: 20190131

REACTIONS (4)
  - Product substitution issue [None]
  - Drug ineffective [None]
  - Hyperhidrosis [None]
  - Nervousness [None]

NARRATIVE: CASE EVENT DATE: 20190131
